FAERS Safety Report 14789811 (Version 1)
Quarter: 2018Q2

REPORT INFORMATION
  Report Type: Spontaneous
  Country: US (occurrence: US)
  Receive Date: 20180423
  Receipt Date: 20180423
  Transmission Date: 20180711
  Serious: Yes (Hospitalization, Other)
  Sender: FDA-Public Use
  Company Number: US-AMGEN-USASP2018054397

PATIENT
  Sex: Female

DRUGS (2)
  1. ENBREL [Suspect]
     Active Substance: ETANERCEPT
     Indication: PRODUCT USED FOR UNKNOWN INDICATION
     Dosage: UNK
     Route: 065
  2. ENBREL [Suspect]
     Active Substance: ETANERCEPT
     Dosage: UNK
     Route: 065
     Dates: start: 2018, end: 20180413

REACTIONS (6)
  - Insomnia [Unknown]
  - Infection [Unknown]
  - Urinary tract infection [Unknown]
  - Diarrhoea [Unknown]
  - Pruritus [Unknown]
  - Pneumonia streptococcal [Unknown]

NARRATIVE: CASE EVENT DATE: 2018
